FAERS Safety Report 18138928 (Version 1)
Quarter: 2020Q3

REPORT INFORMATION
  Report Type: Spontaneous
  Country: CN (occurrence: CN)
  Receive Date: 20200812
  Receipt Date: 20200812
  Transmission Date: 20201103
  Serious: Yes (Other)
  Sender: FDA-Public Use
  Company Number: CN-BAXTER-2020BAX016265

PATIENT
  Age: 65 Year
  Sex: Female
  Weight: 60 kg

DRUGS (10)
  1. ENDOXAN [Suspect]
     Active Substance: CYCLOPHOSPHAMIDE
     Dosage: 6TH CHEMOTHERAPY, CYCLOPHOSPHAMIDE 0.9 G + NS 250 ML
     Route: 041
     Dates: start: 20200716, end: 20200716
  2. DUOPAFEI [Suspect]
     Active Substance: DOCETAXEL
     Indication: INVASIVE DUCTAL BREAST CARCINOMA
     Dosage: 1ST TO 5TH CHEMOTHERAPY, DUOPAFEI + NS
     Route: 041
  3. 0.9% SODIUM CHLORIDE INJECTION [Suspect]
     Active Substance: SODIUM CHLORIDE
     Dosage: 1ST TO 5TH CHEMOTHERAPY, DUOPAFEI + NS
     Route: 041
  4. 0.9% SODIUM CHLORIDE INJECTION [Suspect]
     Active Substance: SODIUM CHLORIDE
     Dosage: 6TH CHEMOTHERAPY, DUOPAFEI 80 MG + NS 250 ML
     Route: 041
     Dates: start: 20200716, end: 20200716
  5. ENDOXAN [Suspect]
     Active Substance: CYCLOPHOSPHAMIDE
     Indication: INVASIVE DUCTAL BREAST CARCINOMA
     Dosage: 1ST TO 5TH CHEMOTHERAPY, CYCLOPHOSPHAMIDE + NS
     Route: 041
  6. 0.9% SODIUM CHLORIDE INJECTION [Suspect]
     Active Substance: SODIUM CHLORIDE
     Dosage: 6TH CHEMOTHERAPY, CYCLOPHOSPHAMIDE 0.9 G + NS 250 ML
     Route: 041
     Dates: start: 20200716, end: 20200716
  7. DUOPAFEI [Suspect]
     Active Substance: DOCETAXEL
     Dosage: 6TH CHEMOTHERAPY, DUOPAFEI 80 MG + NS 250 ML
     Route: 041
     Dates: start: 20200716, end: 20200716
  8. DUOPAFEI [Suspect]
     Active Substance: DOCETAXEL
     Dosage: 6TH CHEMOTHERAPY, DUOPAFEI 40 MG + NS 100 ML
     Route: 041
     Dates: start: 20200716, end: 20200716
  9. 0.9% SODIUM CHLORIDE INJECTION [Suspect]
     Active Substance: SODIUM CHLORIDE
     Dosage: 6TH CHEMOTHERAPY, DUOPAFEI 40 MG + NS 100 ML
     Route: 041
     Dates: start: 20200716, end: 20200716
  10. 0.9% SODIUM CHLORIDE INJECTION [Suspect]
     Active Substance: SODIUM CHLORIDE
     Indication: MEDICATION DILUTION
     Dosage: 1ST TO 5TH CHEMOTHERAPY, CYCLOPHOSPHAMIDE + NS
     Route: 041

REACTIONS (1)
  - Myelosuppression [Recovered/Resolved]

NARRATIVE: CASE EVENT DATE: 20200720
